FAERS Safety Report 23719303 (Version 3)
Quarter: 2024Q3

REPORT INFORMATION
  Report Type: Report from Study
  Country: KR (occurrence: KR)
  Receive Date: 20240408
  Receipt Date: 20240710
  Transmission Date: 20241016
  Serious: Yes (Hospitalization, Other)
  Sender: ACERUS PHARMACEUTICALS
  Company Number: KR-ACERUSPHRM-2024-KR-000001

PATIENT
  Age: 73 Year
  Sex: Male
  Weight: 73 kg

DRUGS (7)
  1. NATESTO [Suspect]
     Active Substance: TESTOSTERONE
     Indication: Hypogonadism
     Route: 045
     Dates: start: 20231121, end: 20240213
  2. Betmiga PR tab [Concomitant]
     Indication: Benign prostatic hyperplasia
     Route: 048
     Dates: start: 20230909
  3. Bup-4 Tab [Concomitant]
     Indication: Benign prostatic hyperplasia
     Route: 048
     Dates: start: 20230919
  4. Flivas tab [Concomitant]
     Indication: Benign prostatic hyperplasia
     Route: 048
     Dates: start: 20230919
  5. Escorten tab [Concomitant]
     Indication: Sleep apnoea syndrome
     Route: 048
     Dates: start: 20231228, end: 20240111
  6. Lipozet tab [Concomitant]
     Indication: Hypertension
     Route: 048
     Dates: start: 20220721
  7. Olmevikar Tab [Concomitant]
     Indication: Hypertension
     Route: 048
     Dates: start: 20220721

REACTIONS (1)
  - Bladder transitional cell carcinoma [Recovered/Resolved]

NARRATIVE: CASE EVENT DATE: 20240213
